FAERS Safety Report 6061569-7 (Version None)
Quarter: 2009Q1

REPORT INFORMATION
  Report Type: 
  Country: None (occurrence: None)
  Receive Date: 20090130
  Receipt Date: 20090130
  Transmission Date: 20090719
  Serious: Yes (Hospitalization)
  Sender: FDA-Public Use
  Company Number: None

PATIENT
  Age: 41 Year
  Sex: Female
  Weight: 77.1115 kg

DRUGS (1)
  1. MIRENA [Suspect]
     Indication: CONTRACEPTION
     Dates: start: 20080501, end: 20090127

REACTIONS (6)
  - COMA [None]
  - DIZZINESS [None]
  - GRAND MAL CONVULSION [None]
  - MOUTH HAEMORRHAGE [None]
  - TONGUE BITING [None]
  - WEIGHT INCREASED [None]
